FAERS Safety Report 7677294-2 (Version None)
Quarter: 2011Q3

REPORT INFORMATION
  Report Type: 
  Country: None (occurrence: None)
  Receive Date: 20110811
  Receipt Date: 20110729
  Transmission Date: 20111222
  Serious: Yes (Hospitalization)
  Sender: FDA-Public Use
  Company Number: FR-SANOFI-AVENTIS-2011SA048537

PATIENT
  Age: 81 Year
  Sex: Female

DRUGS (4)
  1. INDAPAMIDE [Suspect]
     Route: 048
     Dates: end: 20110707
  2. ASPIRIN [Concomitant]
     Route: 048
     Dates: end: 20110407
  3. ATACAND [Concomitant]
     Route: 048
     Dates: end: 20110407
  4. KERLONE [Suspect]
     Route: 048
     Dates: end: 20110407

REACTIONS (4)
  - LEUKOPENIA [None]
  - FALL [None]
  - ASPARTATE AMINOTRANSFERASE INCREASED [None]
  - ALANINE AMINOTRANSFERASE INCREASED [None]
